FAERS Safety Report 9851189 (Version 1)
Quarter: 2014Q1

REPORT INFORMATION
  Report Type: Spontaneous
  Country: US (occurrence: US)
  Receive Date: 20140128
  Receipt Date: 20140128
  Transmission Date: 20141002
  Serious: No
  Sender: FDA-Public Use
  Company Number: US-SA-2013SA122009

PATIENT
  Age: 65 Year
  Sex: Female

DRUGS (4)
  1. LASIX [Suspect]
     Route: 065
  2. ZOCOR [Suspect]
     Route: 065
  3. METFORMIN [Concomitant]
  4. NIACIN [Concomitant]

REACTIONS (2)
  - Rash [Recovered/Resolved]
  - Pruritus [Unknown]
